FAERS Safety Report 18006409 (Version 1)
Quarter: 2020Q3

REPORT INFORMATION
  Report Type: Spontaneous
  Country: US (occurrence: US)
  Receive Date: 20200710
  Receipt Date: 20200710
  Transmission Date: 20201103
  Serious: No
  Sender: FDA-Public Use
  Company Number: None

PATIENT
  Sex: Male

DRUGS (1)
  1. ARIPIPRAZOLE. [Suspect]
     Active Substance: ARIPIPRAZOLE
     Route: 048
     Dates: start: 20190604, end: 20190711

REACTIONS (4)
  - Rash erythematous [None]
  - Drug eruption [None]
  - Papule [None]
  - Therapy cessation [None]

NARRATIVE: CASE EVENT DATE: 20190604
